FAERS Safety Report 4489253-1 (Version None)
Quarter: 2004Q4

REPORT INFORMATION
  Report Type: 
  Country: None (occurrence: None)
  Receive Date: 20041029
  Receipt Date: 20030605
  Transmission Date: 20050328
  Serious: Yes (Hospitalization, Other)
  Sender: FDA-Public Use
  Company Number: US-MERCK-0306USA00710

PATIENT
  Age: 85 Year
  Sex: Female

DRUGS (10)
  1. VIOXX [Suspect]
     Indication: OSTEOARTHRITIS
     Route: 048
     Dates: start: 20000201, end: 20010108
  2. VIOXX [Suspect]
     Route: 048
     Dates: start: 20010109
  3. PROCARDIA XL [Concomitant]
     Route: 065
  4. PRINIVIL [Concomitant]
     Route: 065
  5. DIAZIDE [Concomitant]
     Route: 065
  6. SYNTHROID [Concomitant]
     Route: 065
  7. ECOTRIN [Concomitant]
     Route: 065
  8. HYDREA [Concomitant]
     Route: 065
  9. OSTEO-BI-FLEX [Concomitant]
     Route: 065
  10. COMPAZINE [Concomitant]
     Route: 065

REACTIONS (29)
  - ANGINA PECTORIS [None]
  - ANOREXIA [None]
  - ASTHENIA [None]
  - BLOOD PRESSURE INCREASED [None]
  - BONE DISORDER [None]
  - CEREBRAL ATROPHY [None]
  - CEREBROVASCULAR ACCIDENT [None]
  - CONTUSION [None]
  - CONVULSION [None]
  - DEHYDRATION [None]
  - DEPRESSED LEVEL OF CONSCIOUSNESS [None]
  - DEPRESSION [None]
  - DIET REFUSAL [None]
  - EXTENSOR PLANTAR RESPONSE [None]
  - FALL [None]
  - FATIGUE [None]
  - HAEMATOMA [None]
  - HEPATIC LESION [None]
  - HYPOKALAEMIA [None]
  - INSOMNIA [None]
  - JOINT INJURY [None]
  - MENTAL STATUS CHANGES [None]
  - MOOD ALTERED [None]
  - NAUSEA [None]
  - NERVOUS SYSTEM DISORDER [None]
  - OEDEMA PERIPHERAL [None]
  - PARALYSIS [None]
  - PYELONEPHRITIS [None]
  - URINARY TRACT INFECTION [None]
